FAERS Safety Report 18292845 (Version 1)
Quarter: 2020Q3

REPORT INFORMATION
  Report Type: Spontaneous
  Country: CA (occurrence: CA)
  Receive Date: 20200921
  Receipt Date: 20200921
  Transmission Date: 20201103
  Serious: Yes (Death, Other)
  Sender: FDA-Public Use
  Company Number: CA-TAKEDA-2020TUS039538

PATIENT
  Age: 53 Year
  Sex: Female

DRUGS (3)
  1. VELCADE [Suspect]
     Active Substance: BORTEZOMIB
     Indication: THROMBOTIC THROMBOCYTOPENIC PURPURA
     Dosage: 2.13 MILLIGRAM
     Route: 058
  2. METHYLPREDNISOLONE SODIUM SUCCINATE. [Suspect]
     Active Substance: METHYLPREDNISOLONE SODIUM SUCCINATE
     Indication: THROMBOTIC THROMBOCYTOPENIC PURPURA
     Dosage: 1000 MILLIGRAM
     Route: 042
  3. RITUXIMAB. [Suspect]
     Active Substance: RITUXIMAB
     Indication: THROMBOTIC THROMBOCYTOPENIC PURPURA
     Dosage: 800 MILLIGRAM
     Route: 042

REACTIONS (4)
  - Drug ineffective [Fatal]
  - Cardiac arrest [Fatal]
  - Product use in unapproved indication [Unknown]
  - Off label use [Unknown]
